FAERS Safety Report 24058515 (Version 1)
Quarter: 2024Q3

REPORT INFORMATION
  Report Type: Spontaneous
  Country: US (occurrence: US)
  Receive Date: 20240708
  Receipt Date: 20240708
  Transmission Date: 20241017
  Serious: Yes (Other)
  Sender: AMGEN
  Company Number: US-AMGEN-USASP2024129904

PATIENT

DRUGS (4)
  1. FILGRASTIM [Suspect]
     Active Substance: FILGRASTIM
     Indication: Allogenic stem cell transplantation
     Dosage: 5 MICROGRAM/KILOGRAM (FROM DAY 5 AFTER TRANSPLANT UNTIL ENGRAFTMENT)
     Route: 065
  2. CYCLOPHOSPHAMIDE [Suspect]
     Active Substance: CYCLOPHOSPHAMIDE
     Indication: Prophylaxis against graft versus host disease
     Dosage: 50 MILLIGRAM/KILOGRAM (X 2 DAYS ON POST-HCT DAYS PLUS 3 AND PLUS 4)
     Route: 065
  3. MYCOPHENOLATE MOFETIL [Suspect]
     Active Substance: MYCOPHENOLATE MOFETIL
     Indication: Prophylaxis against graft versus host disease
     Dosage: UNK (STARTING ON DAY PLUS 5 AND DISCONTINUED ON DAY PLUS 35)
     Route: 065
  4. TACROLIMUS [Concomitant]
     Active Substance: TACROLIMUS
     Indication: Prophylaxis against graft versus host disease
     Dosage: UNK UNK, QD  (STARTING ON DAY PLUS 5 AND DISCONTINUED ON DAY PLUS 35)

REACTIONS (2)
  - Cytopenia [Unknown]
  - Splenomegaly [Unknown]
